FAERS Safety Report 6927461-8 (Version None)
Quarter: 2010Q3

REPORT INFORMATION
  Report Type: 
  Country: None (occurrence: None)
  Receive Date: 20100817
  Receipt Date: 20100805
  Transmission Date: 20110219
  Serious: Yes (Hospitalization, Other)
  Sender: FDA-Public Use
  Company Number: CH-PFIZER INC-2010100908

PATIENT
  Age: 78 Year
  Sex: Male

DRUGS (1)
  1. CLINDAMYCIN HCL [Suspect]
     Indication: DENTAL IMPLANTATION
     Dosage: 150 MG, UNK
     Route: 048

REACTIONS (3)
  - RESPIRATORY DISTRESS [None]
  - SYNCOPE [None]
  - TRACHEITIS [None]
